FAERS Safety Report 8984091 (Version 1)
Quarter: 2012Q4

REPORT INFORMATION
  Report Type: Spontaneous
  Country: JP (occurrence: None)
  Receive Date: 20121214
  Receipt Date: 20121214
  Transmission Date: 20130627
  Serious: Yes (Other)
  Sender: FDA-Public Use
  Company Number: 2012-004341

PATIENT
  Age: 66 Year
  Sex: Female

DRUGS (3)
  1. ACTONEL [Suspect]
     Route: 048
  2. VITAMIN C [Concomitant]
  3. VITAMIN D /00318501/ (COLECALCIFEROL) [Concomitant]

REACTIONS (3)
  - Pharyngeal neoplasm [None]
  - Dysphagia [None]
  - Drug administration error [None]
